FAERS Safety Report 6906385-6 (Version None)
Quarter: 2010Q3

REPORT INFORMATION
  Report Type: 
  Country: None (occurrence: None)
  Receive Date: 20100804
  Receipt Date: 20100727
  Transmission Date: 20110219
  Serious: Yes (Hospitalization)
  Sender: FDA-Public Use
  Company Number: A0873654A

PATIENT
  Sex: Female
  Weight: 78 kg

DRUGS (4)
  1. AEROLIN [Suspect]
     Dosage: 2PUFF TWICE PER DAY
     Dates: start: 20050101
  2. SERETIDE [Concomitant]
     Dosage: 1PUFF TWICE PER DAY
     Dates: start: 20100531
  3. METICORTEN [Concomitant]
     Dates: start: 20100524
  4. MODURETIC 5-50 [Concomitant]
     Dosage: 1TAB PER DAY
     Dates: start: 20030101

REACTIONS (6)
  - BRONCHITIS [None]
  - DRUG INEFFECTIVE [None]
  - ERYTHEMA [None]
  - HYPERTENSION [None]
  - PNEUMONIA [None]
  - PRODUCT QUALITY ISSUE [None]
